FAERS Safety Report 13852453 (Version 2)
Quarter: 2017Q3

REPORT INFORMATION
  Report Type: Report from Study
  Country: US (occurrence: US)
  Receive Date: 20170810
  Receipt Date: 20170905
  Transmission Date: 20171127
  Serious: Yes (Other)
  Sender: FDA-Public Use
  Company Number: PHEH2017US024912

PATIENT
  Age: 59 Year
  Sex: Male
  Weight: 127.3 kg

DRUGS (9)
  1. DIGOXIN. [Concomitant]
     Active Substance: DIGOXIN
     Indication: HYPERTENSION
     Dosage: .25 MG, UNK
     Route: 048
     Dates: start: 2014
  2. COSENTYX [Suspect]
     Active Substance: SECUKINUMAB
     Indication: PSORIASIS
  3. CARVEDILOL. [Concomitant]
     Active Substance: CARVEDILOL
     Indication: ATRIAL FIBRILLATION
     Dosage: 25 MG, UNK
     Route: 048
     Dates: start: 2014
  4. LASIX [Concomitant]
     Active Substance: FUROSEMIDE
     Indication: HYPERTENSION
     Dosage: 20 MG, UNK
     Route: 048
     Dates: start: 2014
  5. LASIX [Concomitant]
     Active Substance: FUROSEMIDE
     Dosage: 20 MG, QD
     Route: 048
     Dates: start: 2014
  6. XARELTO [Concomitant]
     Active Substance: RIVAROXABAN
     Indication: CARDIAC FAILURE CONGESTIVE
     Dosage: 20 MG, UNK
     Route: 048
     Dates: start: 2014
  7. COSENTYX [Suspect]
     Active Substance: SECUKINUMAB
     Indication: PSORIASIS
     Dosage: 300 MG, QMO
     Route: 058
     Dates: start: 20170512
  8. TRAMADOL. [Concomitant]
     Active Substance: TRAMADOL
     Indication: ARTHRITIS
     Dosage: 50 MG, UNK
     Route: 048
     Dates: start: 2015
  9. CELEBREX [Concomitant]
     Active Substance: CELECOXIB
     Indication: ARTHRITIS
     Dosage: 200 MG, UNK
     Route: 048
     Dates: start: 2015

REACTIONS (6)
  - Blood pressure increased [Not Recovered/Not Resolved]
  - Psoriatic arthropathy [Not Recovered/Not Resolved]
  - Weight increased [Not Recovered/Not Resolved]
  - Blood pressure diastolic increased [Not Recovered/Not Resolved]
  - Dyspnoea [Not Recovered/Not Resolved]
  - Joint stiffness [Not Recovered/Not Resolved]

NARRATIVE: CASE EVENT DATE: 20170528
